FAERS Safety Report 7150125-5 (Version None)
Quarter: 2010Q4

REPORT INFORMATION
  Report Type: 
  Country: None (occurrence: None)
  Receive Date: 20101210
  Receipt Date: 20101202
  Transmission Date: 20110411
  Serious: Yes (Hospitalization, Other)
  Sender: FDA-Public Use
  Company Number: US-US-EMD SERONO, INC.-230284K09USA

PATIENT
  Sex: Female
  Weight: 117 kg

DRUGS (23)
  1. REBIF [Suspect]
     Indication: MULTIPLE SCLEROSIS
     Route: 058
     Dates: start: 20041201, end: 20081101
  2. REBIF [Suspect]
     Route: 058
     Dates: start: 20081101
  3. TIZANIDINE [Concomitant]
     Route: 065
  4. LIPITOR [Concomitant]
     Route: 065
  5. BACLOFEN [Concomitant]
     Route: 065
  6. LEXAPRO [Concomitant]
     Route: 065
  7. CLONIDINE [Concomitant]
     Route: 065
  8. OXYBUTYNIN [Concomitant]
     Route: 065
  9. CALCIUM [Concomitant]
     Route: 065
  10. VITAMINS [Concomitant]
     Route: 065
  11. ASPIRIN [Concomitant]
     Route: 065
  12. NASONEX [Concomitant]
     Route: 065
  13. ALBUTEROL [Concomitant]
     Route: 065
  14. SINGULAIR [Concomitant]
     Route: 065
  15. PRIMIDONE [Concomitant]
     Route: 065
  16. RANITIDINE [Concomitant]
     Route: 065
  17. MEGA OMEGA 3 [Concomitant]
     Route: 065
  18. IBUPROFEN [Concomitant]
     Indication: PAIN
     Route: 065
  19. HYDROCHLOROTHIAZIDE [Concomitant]
     Route: 065
  20. ADVAIR DISKUS 100/50 [Concomitant]
     Route: 065
  21. NEURONTIN [Concomitant]
     Route: 065
  22. TYLENOL W/ CODEINE [Concomitant]
     Indication: ANALGESIC THERAPY
     Route: 065
  23. PROVIGIL [Concomitant]
     Indication: FATIGUE
     Route: 065

REACTIONS (3)
  - DIABETES MELLITUS [None]
  - OXYGEN SATURATION DECREASED [None]
  - STRESS FRACTURE [None]
